FAERS Safety Report 5761112-3 (Version None)
Quarter: 2008Q2

REPORT INFORMATION
  Report Type: 
  Country: None (occurrence: None)
  Receive Date: 20080606
  Receipt Date: 20080528
  Transmission Date: 20081010
  Serious: Yes (Death, Hospitalization, Congenital Anomaly)
  Sender: FDA-Public Use
  Company Number: A0662864A

PATIENT
  Sex: Male
  Weight: 3.1 kg

DRUGS (11)
  1. PAXIL CR [Suspect]
     Indication: DEPRESSION
     Dosage: 25MG PER DAY
     Dates: start: 20010227, end: 20030101
  2. VITAMIN TAB [Concomitant]
  3. ALBUTEROL [Concomitant]
     Dates: start: 19950101
  4. NASONEX [Concomitant]
     Dates: start: 20020201
  5. ROBITUSSIN [Concomitant]
     Dates: start: 20020227
  6. GENTAMICIN [Concomitant]
     Dates: start: 20020227
  7. SUDAFED 12 HOUR [Concomitant]
     Dates: start: 20020223
  8. PHENERGAN [Concomitant]
     Dates: start: 20020223
  9. TYLENOL [Concomitant]
  10. PAXIL [Concomitant]
     Indication: DEPRESSION
     Dosage: 20MG PER DAY
  11. AUGMENTIN '125' [Concomitant]
     Dosage: 500MG TWICE PER DAY
     Dates: start: 20011002

REACTIONS (8)
  - ANOMALOUS PULMONARY VENOUS CONNECTION [None]
  - ATRIAL SEPTAL DEFECT [None]
  - DRUG EXPOSURE DURING PREGNANCY [None]
  - LYMPHANGIECTASIA [None]
  - PATENT DUCTUS ARTERIOSUS [None]
  - PULMONARY HYPERTENSION [None]
  - RENAL FAILURE [None]
  - RESPIRATORY DISTRESS [None]
